FAERS Safety Report 4288683-0 (Version None)
Quarter: 2004Q1

REPORT INFORMATION
  Report Type: 
  Country: None (occurrence: None)
  Receive Date: 20040205
  Receipt Date: 20040126
  Transmission Date: 20041129
  Serious: Yes (Hospitalization)
  Sender: FDA-Public Use
  Company Number: US065295

PATIENT
  Sex: Female

DRUGS (3)
  1. ENBREL [Suspect]
     Indication: RHEUMATOID ARTHRITIS
     Dates: start: 20030701, end: 20031001
  2. METHOTREXATE [Concomitant]
  3. REMICADE [Concomitant]

REACTIONS (2)
  - PELVIC VENOUS THROMBOSIS [None]
  - ULCER [None]
